FAERS Safety Report 24358553 (Version 1)
Quarter: 2024Q3

REPORT INFORMATION
  Report Type: Spontaneous
  Country: DE (occurrence: DE)
  Receive Date: 20240924
  Receipt Date: 20240924
  Transmission Date: 20241016
  Serious: Yes (Other)
  Sender: PFIZER
  Company Number: DE-PFIZER INC-202400259917

PATIENT
  Age: 48 Year
  Sex: Male

DRUGS (2)
  1. DOSTINEX [Suspect]
     Active Substance: CABERGOLINE
     Indication: Prolactin-producing pituitary tumour
     Dosage: UNK
     Dates: start: 2021
  2. DOSTINEX [Suspect]
     Active Substance: CABERGOLINE
     Dosage: 0.25 MG, WEEKLY

REACTIONS (7)
  - Aortic disorder [Not Recovered/Not Resolved]
  - Tricuspid valve disease [Not Recovered/Not Resolved]
  - Fatigue [Unknown]
  - Apathy [Unknown]
  - Blood pressure decreased [Unknown]
  - Impaired healing [Not Recovered/Not Resolved]
  - Off label use [Unknown]
